FAERS Safety Report 5988386-8 (Version None)
Quarter: 2008Q4

REPORT INFORMATION
  Report Type: 
  Country: None (occurrence: None)
  Receive Date: 20081210
  Receipt Date: 20081205
  Transmission Date: 20090506
  Serious: Yes (Other)
  Sender: FDA-Public Use
  Company Number: JP-ASTRAZENECA-2008AP09130

PATIENT
  Age: 57 Year
  Sex: Female

DRUGS (2)
  1. CRESTOR [Suspect]
     Indication: HYPERLIPIDAEMIA
     Route: 048
     Dates: start: 20080418, end: 20081030
  2. CRESTOR [Suspect]
     Route: 048
     Dates: start: 20081105

REACTIONS (1)
  - ELECTROCARDIOGRAM QT PROLONGED [None]
